FAERS Safety Report 7478020-2 (Version None)
Quarter: 2011Q2

REPORT INFORMATION
  Report Type: 
  Country: None (occurrence: None)
  Receive Date: 20110513
  Receipt Date: 20110503
  Transmission Date: 20111010
  Serious: Yes (Hospitalization, Other)
  Sender: FDA-Public Use
  Company Number: RU-BAYER-2011-037809

PATIENT
  Age: 44 Year
  Sex: Female

DRUGS (4)
  1. BILTRICIDE [Suspect]
     Indication: OPISTHORCHIASIS
     Dosage: 1 DF, TID
     Route: 048
     Dates: start: 19950101, end: 19950101
  2. SUPRASTIN [Concomitant]
  3. DIMEDROL [Concomitant]
     Dosage: UNK
     Dates: start: 19950101
  4. AMITRIPTYLINE HCL [Concomitant]
     Dosage: UNK
     Dates: start: 19950101

REACTIONS (11)
  - HAIR COLOUR CHANGES [None]
  - PIGMENTATION DISORDER [None]
  - IMMUNE SYSTEM DISORDER [None]
  - TACHYCARDIA [None]
  - APHONIA [None]
  - BURNING SENSATION [None]
  - SKIN WRINKLING [None]
  - GALLBLADDER POLYP [None]
  - BODY TEMPERATURE INCREASED [None]
  - CONTUSION [None]
  - HABITUAL ABORTION [None]
